FAERS Safety Report 8614214-8 (Version None)
Quarter: 2012Q3

REPORT INFORMATION
  Report Type: 
  Country: None (occurrence: None)
  Receive Date: 20120823
  Receipt Date: 20120813
  Transmission Date: 20120928
  Serious: Yes (Life-Threatening, Hospitalization, Other)
  Sender: FDA-Public Use
  Company Number: US-009507513-1208USA003404

PATIENT

DRUGS (8)
  1. REBETOL [Suspect]
     Dosage: 600 MG, UNK
     Route: 048
     Dates: end: 20120803
  2. OXYCODONE HCL [Concomitant]
  3. REBETOL [Suspect]
     Indication: HEPATITIS C
     Dosage: 800 MG, UNK
     Route: 048
     Dates: start: 20120427
  4. CLONAZEPAM [Concomitant]
  5. NICOTINE [Concomitant]
  6. PEG-INTRON [Suspect]
     Indication: HEPATITIS C
     Dosage: 80 MICROGRAMS PER 0.5 ML INJECTION QW
     Route: 058
     Dates: start: 20120427, end: 20120803
  7. CELEXA [Concomitant]
  8. NEUROXIN (CYANOCOBALAMIN (+) PYRIDOXINE HYDROCHLORIDE (+) THIAMINE HYD [Concomitant]

REACTIONS (2)
  - SUICIDAL IDEATION [None]
  - ANAEMIA [None]
